FAERS Safety Report 5733068-0 (Version None)
Quarter: 2008Q2

REPORT INFORMATION
  Report Type: 
  Country: None (occurrence: None)
  Receive Date: 20080509
  Receipt Date: 20080506
  Transmission Date: 20081010
  Serious: Yes (Disabling)
  Sender: FDA-Public Use
  Company Number: US-BRISTOL-MYERS SQUIBB COMPANY-14117501

PATIENT
  Age: 46 Year
  Sex: Female

DRUGS (3)
  1. ORENCIA [Suspect]
     Indication: RHEUMATOID ARTHRITIS
     Dosage: GIVEN FOR OVER 30 MIN.
     Route: 042
     Dates: start: 20080211, end: 20080311
  2. AZULFIDINE EN-TABS [Concomitant]
     Dosage: GIVEN AS INFUSION
     Route: 042
     Dates: start: 20080211, end: 20080311
  3. PLAQUENIL [Concomitant]
     Dosage: GIVEN AS INFUSION
     Route: 042
     Dates: start: 20080211, end: 20080311

REACTIONS (1)
  - DEAFNESS [None]
